FAERS Safety Report 6262259-8 (Version None)
Quarter: 2009Q3

REPORT INFORMATION
  Report Type: 
  Country: None (occurrence: None)
  Receive Date: 20090709
  Receipt Date: 20090706
  Transmission Date: 20100115
  Serious: Yes (Hospitalization)
  Sender: FDA-Public Use
  Company Number: US-TEVA-200974USA

PATIENT
  Sex: Male
  Weight: 63.106 kg

DRUGS (10)
  1. FLUOROURACIL [Suspect]
     Indication: COLORECTAL CANCER METASTATIC
     Dosage: ONCE EVERY2 WEEKS
     Route: 042
     Dates: start: 20071112, end: 20071120
  2. CALCIUM FOLINATE 100 MG BASE/VIAL [Suspect]
     Indication: COLORECTAL CANCER METASTATIC
     Dosage: EVERY TWO WEEKS
     Route: 042
     Dates: start: 20071112, end: 20071120
  3. AXITINIB (AG-013,736) [Suspect]
     Indication: COLORECTAL CANCER METASTATIC
     Dosage: 2X/DAY
     Route: 048
     Dates: start: 20070926, end: 20071120
  4. OXALIPLATIN [Suspect]
     Indication: COLORECTAL CANCER METASTATIC
     Route: 042
     Dates: start: 20071112, end: 20071120
  5. TERAZOSIN HCL [Concomitant]
     Dates: start: 20070926, end: 20071120
  6. METOPROLOL [Concomitant]
     Route: 048
     Dates: start: 20010824
  7. FERROUS SULFATE TAB [Concomitant]
     Route: 048
     Dates: start: 20070905
  8. HYDROCHLOROTHIAZIDE [Concomitant]
     Dates: start: 20071108, end: 20071121
  9. MEGESTROL ACETATE [Concomitant]
     Dates: start: 20070919
  10. GELCLAIR [Concomitant]
     Dates: start: 20070927, end: 20071120

REACTIONS (1)
  - DEHYDRATION [None]
